FAERS Safety Report 6184317-9 (Version None)
Quarter: 2009Q2

REPORT INFORMATION
  Report Type: 
  Country: None (occurrence: None)
  Receive Date: 20090508
  Receipt Date: 20090428
  Transmission Date: 20091009
  Serious: Yes (Hospitalization)
  Sender: FDA-Public Use
  Company Number: JP-ABBOTT-08P-087-0444456-00

PATIENT
  Age: 80 Year
  Sex: Male

DRUGS (13)
  1. LUPRON DEPOT [Suspect]
     Indication: PROSTATE CANCER STAGE IV
     Route: 058
     Dates: start: 20070516
  2. LUPRON DEPOT [Suspect]
     Route: 058
     Dates: start: 20070516, end: 20070516
  3. LUPRON DEPOT [Suspect]
     Route: 058
     Dates: start: 20070808, end: 20070808
  4. LUPRON DEPOT [Suspect]
     Route: 058
     Dates: start: 20071030
  5. CASODEX [Concomitant]
     Indication: PROSTATE CANCER STAGE IV
     Route: 048
  6. HARNAL [Concomitant]
     Indication: DYSURIA
     Route: 048
  7. LOXONIN [Concomitant]
     Indication: PAIN
     Route: 048
     Dates: end: 20071225
  8. LAC B [Concomitant]
     Indication: DIARRHOEA
     Route: 048
     Dates: end: 20071225
  9. OMEPRAL [Concomitant]
     Indication: GASTRITIS
     Route: 048
     Dates: start: 20070928, end: 20071225
  10. TOUGHMAC E [Concomitant]
     Indication: GASTRITIS
     Route: 048
     Dates: start: 20070928, end: 20071225
  11. MAGMITT [Concomitant]
     Indication: GASTRITIS
     Route: 048
     Dates: start: 20070928, end: 20071225
  12. NAUZELIN [Concomitant]
     Indication: GASTRITIS
     Route: 048
     Dates: start: 20070920, end: 20071225
  13. MOBIC [Concomitant]
     Indication: PAIN
     Route: 048
     Dates: start: 20071030, end: 20071226

REACTIONS (2)
  - GASTRIC CANCER [None]
  - ILEUS [None]
